FAERS Safety Report 20840632 (Version 1)
Quarter: 2022Q2

REPORT INFORMATION
  Report Type: Spontaneous
  Country: US (occurrence: None)
  Receive Date: 20220517
  Receipt Date: 20220517
  Transmission Date: 20220721
  Serious: Yes (Death)
  Sender: FDA-Public Use
  Company Number: None

PATIENT
  Age: 73 Year
  Sex: Female
  Weight: 68.2 kg

DRUGS (1)
  1. PAXLOVID [Suspect]
     Active Substance: NIRMATRELVIR\RITONAVIR
     Indication: COVID-19
     Dosage: FREQUENCY : TWICE A DAY;?
     Route: 048

REACTIONS (15)
  - Nausea [None]
  - Vomiting [None]
  - Diarrhoea [None]
  - Feeding disorder [None]
  - Hypothermia [None]
  - Acidosis [None]
  - Blood lactic acid increased [None]
  - Blood creatinine increased [None]
  - Circulatory collapse [None]
  - Bradycardia [None]
  - Pulse absent [None]
  - Pneumonia [None]
  - Pulmonary oedema [None]
  - Pleural effusion [None]
  - Multiple organ dysfunction syndrome [None]

NARRATIVE: CASE EVENT DATE: 20220513
